FAERS Safety Report 19285110 (Version 3)
Quarter: 2021Q3

REPORT INFORMATION
  Report Type: Spontaneous
  Country: NL (occurrence: NL)
  Receive Date: 20210521
  Receipt Date: 20210803
  Transmission Date: 20211014
  Serious: Yes (Other)
  Sender: FDA-Public Use
  Company Number: NL-SA-2021SA169091

PATIENT
  Age: 42 Year
  Sex: Male

DRUGS (2)
  1. PREDNISONE. [Concomitant]
     Active Substance: PREDNISONE
     Indication: EOSINOPHIL COUNT ABNORMAL
  2. DUPILUMAB [Suspect]
     Active Substance: DUPILUMAB
     Indication: ASTHMA
     Dosage: UNK

REACTIONS (3)
  - Renal infarct [Unknown]
  - Condition aggravated [Unknown]
  - Eosinophilic granulomatosis with polyangiitis [Unknown]
